FAERS Safety Report 7265001-7 (Version None)
Quarter: 2011Q1

REPORT INFORMATION
  Report Type: 
  Country: None (occurrence: None)
  Receive Date: 20110131
  Receipt Date: 20110106
  Transmission Date: 20110831
  Serious: Yes (Hospitalization)
  Sender: FDA-Public Use
  Company Number: US-BAYER-201032652NA

PATIENT
  Sex: Female
  Weight: 79.365 kg

DRUGS (4)
  1. OCELLA [Suspect]
     Indication: PREMENSTRUAL SYNDROME
     Dosage: UNK
     Dates: start: 20070101
  2. YASMIN [Suspect]
     Indication: PREMENSTRUAL SYNDROME
     Dosage: UNK
     Dates: start: 20070101
  3. YAZ [Suspect]
     Indication: PREMENSTRUAL SYNDROME
     Route: 048
     Dates: start: 20070101, end: 20100501
  4. ETHINYLESTRADIOL W/NORGESTIMATE [Concomitant]
     Dosage: UNK
     Dates: end: 20080114

REACTIONS (4)
  - CHOLECYSTITIS [None]
  - ABDOMINAL PAIN UPPER [None]
  - BACK PAIN [None]
  - NAUSEA [None]
